FAERS Safety Report 13811188 (Version 1)
Quarter: 2017Q3

REPORT INFORMATION
  Report Type: Spontaneous
  Country: US (occurrence: US)
  Receive Date: 20170728
  Receipt Date: 20170728
  Transmission Date: 20171127
  Serious: No
  Sender: FDA-Public Use
  Company Number: US-ROCHE-1127403

PATIENT
  Sex: Female

DRUGS (1)
  1. BONIVA [Suspect]
     Active Substance: IBANDRONATE SODIUM
     Indication: OSTEOPOROSIS
     Route: 042

REACTIONS (11)
  - Extravasation [Unknown]
  - Injection site induration [Unknown]
  - Burning sensation [Recovering/Resolving]
  - Peripheral swelling [Not Recovered/Not Resolved]
  - Soft tissue injury [Unknown]
  - Injection site warmth [Recovering/Resolving]
  - Paraesthesia [Recovering/Resolving]
  - Pruritus [Unknown]
  - Erythema [Unknown]
  - Thrombophlebitis superficial [Recovering/Resolving]
  - Pain [Recovering/Resolving]
